FAERS Safety Report 4443696-0 (Version None)
Quarter: 2004Q3

REPORT INFORMATION
  Report Type: 
  Country: None (occurrence: None)
  Receive Date: 20040903
  Receipt Date: 20040903
  Transmission Date: 20050211
  Serious: Yes (Hospitalization)
  Sender: FDA-Public Use
  Company Number: None

PATIENT
  Age: 83 Year
  Sex: Female
  Weight: 67.7 kg

DRUGS (2)
  1. MOBIC [Suspect]
     Indication: PAIN
     Dosage: 7.5 MG DAILY ORAL
     Route: 048
     Dates: start: 20030818, end: 20040818
  2. LOTREL [Suspect]
     Indication: HYPERTENSION
     Dosage: 10/20 MG DAILY ORAL
     Route: 048
     Dates: start: 20030818, end: 20040818

REACTIONS (2)
  - DIVERTICULITIS [None]
  - RENAL FAILURE ACUTE [None]
